FAERS Safety Report 7103905-6 (Version None)
Quarter: 2010Q4

REPORT INFORMATION
  Report Type: 
  Country: None (occurrence: None)
  Receive Date: 20101115
  Receipt Date: 20101109
  Transmission Date: 20110411
  Serious: Yes (Other)
  Sender: FDA-Public Use
  Company Number: AU-PFIZER INC-2010145067

PATIENT
  Age: 77 Year
  Sex: Female

DRUGS (1)
  1. XYDEP [Suspect]
     Indication: DEPRESSION
     Dosage: 25 MG, 1X/DAY
     Route: 048
     Dates: start: 20101104

REACTIONS (4)
  - BRONCHIECTASIS [None]
  - DYSURIA [None]
  - LOWER RESPIRATORY TRACT INFECTION [None]
  - PARAESTHESIA [None]
